FAERS Safety Report 7510971-2 (Version None)
Quarter: 2011Q2

REPORT INFORMATION
  Report Type: 
  Country: None (occurrence: None)
  Receive Date: 20110531
  Receipt Date: 20110524
  Transmission Date: 20111010
  Serious: No
  Sender: FDA-Public Use
  Company Number: US-PFIZER INC-2011112845

PATIENT

DRUGS (1)
  1. DIFLUCAN [Suspect]
     Dosage: 200 MG, 1X/DAY

REACTIONS (1)
  - DRUG EFFECT DECREASED [None]
